FAERS Safety Report 5494849-4 (Version None)
Quarter: 2007Q4

REPORT INFORMATION
  Report Type: 
  Country: None (occurrence: None)
  Receive Date: 20071024
  Receipt Date: 20070504
  Transmission Date: 20080405
  Serious: Yes (Other)
  Sender: FDA-Public Use
  Company Number: US-SANOFI-SYNTHELABO-A03200702354

PATIENT
  Age: 37 Year
  Sex: Male
  Weight: 81.6 kg

DRUGS (8)
  1. ZESTRIL [Concomitant]
     Indication: DRUG USE FOR UNKNOWN INDICATION
     Dosage: UNK
     Route: 065
  2. RESTORIL [Concomitant]
     Indication: DRUG USE FOR UNKNOWN INDICATION
     Dosage: UNK
     Route: 065
  3. LEXAPRO [Concomitant]
     Indication: DRUG USE FOR UNKNOWN INDICATION
     Route: 065
  4. RITALIN [Concomitant]
     Indication: DRUG USE FOR UNKNOWN INDICATION
     Route: 065
  5. AMBIEN [Suspect]
     Indication: INSOMNIA
     Route: 048
     Dates: start: 20040401, end: 20051101
  6. AMBIEN [Interacting]
     Indication: SOMNAMBULISM
     Route: 048
     Dates: start: 20040401, end: 20051101
  7. AMBIEN [Interacting]
     Indication: ANXIETY
     Route: 048
     Dates: start: 20040401, end: 20051101
  8. GLASS OF WINE [Interacting]
     Indication: DRUG USE FOR UNKNOWN INDICATION
     Dosage: 1 GLASS OF WINE
     Route: 048

REACTIONS (3)
  - AMNESIA [None]
  - LETHARGY [None]
  - SOMNAMBULISM [None]
